FAERS Safety Report 18447423 (Version 8)
Quarter: 2022Q1

REPORT INFORMATION
  Report Type: Spontaneous
  Country: PK (occurrence: PK)
  Receive Date: 20201101
  Receipt Date: 20220215
  Transmission Date: 20220423
  Serious: Yes (Other)
  Sender: FDA-Public Use
  Company Number: PK-PFIZER INC-2020019226

PATIENT
  Age: 66 Year
  Sex: Male
  Weight: 80 kg

DRUGS (8)
  1. ENBREL [Suspect]
     Active Substance: ETANERCEPT
     Indication: Psoriatic arthropathy
     Dosage: 50 MILLIGRAM, QWK
     Route: 058
     Dates: start: 202001
  2. ENBREL [Suspect]
     Active Substance: ETANERCEPT
     Dosage: 50 MG, CYCLIC (EVERY TWO WEEKS)
     Route: 058
  3. ENBREL [Suspect]
     Active Substance: ETANERCEPT
     Dosage: 50 MILLIGRAM, QWK
     Route: 058
     Dates: start: 20211023
  4. NUBEROL [Concomitant]
     Indication: Pain
     Dosage: UNK UNK, AS NEEDED
  5. CELBEXX [Concomitant]
     Indication: Pain
     Dosage: 200 MG, AS NEEDED
  6. DELTACORTRIL [Concomitant]
     Active Substance: PREDNISOLONE
     Dosage: 5 MG, ALTERNATE DAY
  7. THYROXINE [Concomitant]
     Active Substance: LEVOTHYROXINE
     Dosage: 100 UG, 1X/DAY (BEFORE BREAKFAST)
  8. ESSO [Concomitant]
     Indication: Gastrointestinal disorder therapy
     Dosage: 40 MG, DAILY (IN THE MORNING)

REACTIONS (6)
  - Off label use [Unknown]
  - COVID-19 [Recovered/Resolved]
  - Pain [Unknown]
  - Swelling [Unknown]
  - Joint range of motion decreased [Unknown]
  - Dyspnoea [Recovering/Resolving]
